FAERS Safety Report 9172229 (Version 1)
Quarter: 2013Q1

REPORT INFORMATION
  Report Type: Spontaneous
  Country: GB (occurrence: GB)
  Receive Date: 20130319
  Receipt Date: 20130319
  Transmission Date: 20140127
  Serious: Yes (Hospitalization)
  Sender: FDA-Public Use
  Company Number: GB-TEVA-391918ISR

PATIENT
  Age: 57 Year
  Sex: Female
  Weight: 53 kg

DRUGS (9)
  1. TRIMETHOPRIM [Suspect]
     Indication: URINARY TRACT INFECTION
     Dates: start: 20130218
  2. CITALOPRAM [Concomitant]
     Dates: start: 20121122
  3. CO-CODAMOL [Concomitant]
     Dates: start: 20121122
  4. LANSOPRAZOLE [Concomitant]
     Dates: start: 20121122, end: 20121220
  5. LAMOTRIGINE [Concomitant]
     Dates: start: 20121214, end: 20130111
  6. OMEPRAZOLE [Concomitant]
     Dates: start: 20121214
  7. DIPROBASE [Concomitant]
     Dates: start: 20130102, end: 20130130
  8. PARAFFIN [Concomitant]
     Dates: start: 20130102, end: 20130130
  9. ACICLOVIR [Concomitant]
     Dates: start: 20130213, end: 20130218

REACTIONS (2)
  - Urticaria [Recovered/Resolved]
  - Drug eruption [Recovered/Resolved]
